FAERS Safety Report 7951704-5 (Version None)
Quarter: 2011Q4

REPORT INFORMATION
  Report Type: 
  Country: None (occurrence: None)
  Receive Date: 20111201
  Receipt Date: 20111121
  Transmission Date: 20120403
  Serious: Yes (Other)
  Sender: FDA-Public Use
  Company Number: US-JNJFOC-20111109311

PATIENT
  Sex: Female

DRUGS (9)
  1. REMICADE [Suspect]
     Indication: CROHN'S DISEASE
     Route: 042
     Dates: start: 20010101
  2. METHOTREXATE [Suspect]
     Indication: PSORIASIS
     Route: 048
  3. METHOTREXATE [Suspect]
     Route: 048
  4. METHOTREXATE [Suspect]
     Route: 048
  5. METHOTREXATE [Suspect]
     Route: 048
  6. REMICADE [Suspect]
     Indication: PSORIASIS
     Route: 042
     Dates: start: 20010101
  7. METHOTREXATE [Suspect]
     Indication: PSORIATIC ARTHROPATHY
     Route: 048
  8. REMICADE [Suspect]
     Indication: PSORIATIC ARTHROPATHY
     Route: 042
     Dates: start: 20010101
  9. METHOTREXATE [Suspect]
     Indication: CROHN'S DISEASE
     Route: 048

REACTIONS (10)
  - DYSPNOEA EXERTIONAL [None]
  - ABNORMAL LOSS OF WEIGHT [None]
  - HERPES ZOSTER [None]
  - ANAEMIA [None]
  - DECREASED APPETITE [None]
  - FEELING ABNORMAL [None]
  - NEUROPATHY PERIPHERAL [None]
  - SEBORRHOEIC DERMATITIS [None]
  - ADVERSE DRUG REACTION [None]
  - FATIGUE [None]
